FAERS Safety Report 18976102 (Version 1)
Quarter: 2021Q1

REPORT INFORMATION
  Report Type: Spontaneous
  Country: GB (occurrence: GB)
  Receive Date: 20210305
  Receipt Date: 20210305
  Transmission Date: 20210420
  Serious: Yes (Other)
  Sender: FDA-Public Use
  Company Number: GB-TEVA-2021-GB-1884008

PATIENT
  Age: 76 Year
  Sex: Male
  Weight: 64.86 kg

DRUGS (2)
  1. LUTEIN [Concomitant]
     Active Substance: LUTEIN
     Dosage: 6 MILLIGRAM DAILY;
  2. SILDENAFIL. [Suspect]
     Active Substance: SILDENAFIL
     Indication: ERECTILE DYSFUNCTION
     Dosage: 25 MG
     Route: 048
     Dates: start: 20080630, end: 20210215

REACTIONS (4)
  - Neovascular age-related macular degeneration [Not Recovered/Not Resolved]
  - Ocular hyperaemia [Unknown]
  - Visual impairment [Unknown]
  - Flushing [Unknown]

NARRATIVE: CASE EVENT DATE: 20200618
